FAERS Safety Report 14540241 (Version 1)
Quarter: 2018Q1

REPORT INFORMATION
  Report Type: Spontaneous
  Country: DE (occurrence: DE)
  Receive Date: 20180216
  Receipt Date: 20180216
  Transmission Date: 20180509
  Serious: Yes (Other)
  Sender: FDA-Public Use
  Company Number: DE-TEVA-2018-DE-858234

PATIENT
  Age: 66 Year
  Sex: Female
  Weight: 65 kg

DRUGS (1)
  1. AMOXICILLIN-RATIOPHARM 1000MG [Suspect]
     Active Substance: AMOXICILLIN
     Indication: COUGH
     Dosage: START DATE 19-DEC-2017 (AFTER EVENT OCCURED?)
     Route: 048
     Dates: start: 201712

REACTIONS (2)
  - Upper respiratory tract infection [Unknown]
  - Lower respiratory tract infection [Unknown]

NARRATIVE: CASE EVENT DATE: 20171206
